FAERS Safety Report 23250736 (Version 3)
Quarter: 2023Q4

REPORT INFORMATION
  Report Type: Spontaneous
  Country: CZ (occurrence: CZ)
  Receive Date: 20231201
  Receipt Date: 20231221
  Transmission Date: 20240110
  Serious: Yes (Life-Threatening, Hospitalization, Other)
  Sender: FDA-Public Use
  Company Number: CZ-002147023-NVSC2023CZ252336

PATIENT
  Sex: Female

DRUGS (5)
  1. MAYZENT [Suspect]
     Active Substance: SIPONIMOD
     Indication: Multiple sclerosis
     Dosage: UNK
     Route: 065
     Dates: start: 20210914
  2. MAYZENT [Suspect]
     Active Substance: SIPONIMOD
     Dosage: 1 MG, QD
     Route: 048
     Dates: end: 20231122
  3. CALTRATE [Concomitant]
     Active Substance: CALCIUM CARBONATE
     Indication: Product used for unknown indication
     Dosage: 600MG/4 00IU, QD
     Route: 065
  4. VIGANTOL [Concomitant]
     Indication: Product used for unknown indication
     Dosage: 20 DROPS, QW
     Route: 065
  5. CREON [Concomitant]
     Active Substance: PANCRELIPASE AMYLASE\PANCRELIPASE LIPASE\PANCRELIPASE PROTEASE
     Indication: Product used for unknown indication
     Dosage: UNK, CREON 25000, (2-2-2, TID)
     Route: 065

REACTIONS (5)
  - Adenocarcinoma pancreas [Not Recovered/Not Resolved]
  - Lymphopenia [Recovered/Resolved]
  - Gamma-glutamyltransferase increased [Unknown]
  - Tumour marker increased [Unknown]
  - Blood alkaline phosphatase increased [Unknown]

NARRATIVE: CASE EVENT DATE: 20231011
